FAERS Safety Report 24967032 (Version 1)
Quarter: 2025Q1

REPORT INFORMATION
  Report Type: Spontaneous
  Country: US (occurrence: US)
  Receive Date: 20250213
  Receipt Date: 20250213
  Transmission Date: 20250409
  Serious: No
  Sender: BEIGENE
  Company Number: US-BEIGENE-BGN-2025-002115

PATIENT
  Age: 82 Year

DRUGS (1)
  1. BRUKINSA [Suspect]
     Active Substance: ZANUBRUTINIB
     Indication: Waldenstrom^s macroglobulinaemia
     Dosage: 160 MILLIGRAM, Q12H

REACTIONS (3)
  - Headache [Unknown]
  - Pain in extremity [Unknown]
  - Arthralgia [Unknown]
